FAERS Safety Report 19183092 (Version 2)
Quarter: 2021Q2

REPORT INFORMATION
  Report Type: Spontaneous
  Country: US (occurrence: US)
  Receive Date: 20210427
  Receipt Date: 20210531
  Transmission Date: 20210717
  Serious: No
  Sender: FDA-Public Use
  Company Number: US-SA-2021SA134985

PATIENT
  Age: 54 Year
  Sex: Male

DRUGS (4)
  1. MULTIPLE VITAMIN [Concomitant]
     Active Substance: VITAMINS
  2. DUPIXENT [Suspect]
     Active Substance: DUPILUMAB
     Indication: DERMATITIS ATOPIC
  3. DUPIXENT [Suspect]
     Active Substance: DUPILUMAB
     Indication: PSORIASIS
     Dosage: 300 MG, QOW
     Route: 058
     Dates: start: 20200310
  4. LYRICA [Concomitant]
     Active Substance: PREGABALIN

REACTIONS (7)
  - Swelling [Unknown]
  - Eczema [Unknown]
  - Dermatitis atopic [Unknown]
  - Discomfort [Unknown]
  - Erythema [Unknown]
  - Psoriasis [Not Recovered/Not Resolved]
  - Product use in unapproved indication [Unknown]

NARRATIVE: CASE EVENT DATE: 20200310
